FAERS Safety Report 19693169 (Version 4)
Quarter: 2022Q2

REPORT INFORMATION
  Report Type: Spontaneous
  Country: US (occurrence: US)
  Receive Date: 20210812
  Receipt Date: 20220406
  Transmission Date: 20220720
  Serious: Yes (Other)
  Sender: FDA-Public Use
  Company Number: US-PFIZER INC-202101022749

PATIENT
  Age: 64 Year
  Sex: Female
  Weight: 64.86 kg

DRUGS (2)
  1. CHANTIX [Suspect]
     Active Substance: VARENICLINE TARTRATE
     Indication: Smoking cessation therapy
     Dosage: 1 MG
     Dates: start: 2009
  2. CHANTIX [Suspect]
     Active Substance: VARENICLINE TARTRATE
     Dosage: UNK
     Dates: start: 202012, end: 202101

REACTIONS (3)
  - Neoplasm malignant [Unknown]
  - Lipoedema [Unknown]
  - Recalled product administered [Unknown]

NARRATIVE: CASE EVENT DATE: 20120101
